FAERS Safety Report 7879277-6 (Version None)
Quarter: 2011Q4

REPORT INFORMATION
  Report Type: 
  Country: None (occurrence: None)
  Receive Date: 20111101
  Receipt Date: 20111020
  Transmission Date: 20120403
  Serious: Yes (Hospitalization)
  Sender: FDA-Public Use
  Company Number: US-BAYER-2011-061223

PATIENT
  Age: 29 Year
  Sex: Female
  Weight: 58.957 kg

DRUGS (6)
  1. YASMIN [Suspect]
     Indication: PREMENSTRUAL SYNDROME
  2. AMBIEN [Concomitant]
     Dosage: 5 MG, PRN
     Route: 048
  3. YASMIN [Suspect]
     Indication: CONTRACEPTION
     Dosage: UNK
     Dates: start: 20030501, end: 20040701
  4. CLONAZEPAM [Concomitant]
     Dosage: 1.5 MG, PRN
     Route: 048
  5. LITHIUM CITRATE [Concomitant]
     Indication: BIPOLAR DISORDER
     Dosage: 600 MG, BID
     Route: 048
  6. YASMIN [Suspect]
     Indication: ACNE

REACTIONS (9)
  - ANXIETY [None]
  - MEMORY IMPAIRMENT [None]
  - PAIN IN EXTREMITY [None]
  - INJURY [None]
  - HEMIPLEGIA [None]
  - EMOTIONAL DISTRESS [None]
  - MENTAL DISORDER [None]
  - CEREBROVASCULAR ACCIDENT [None]
  - PAIN [None]
